FAERS Safety Report 5147920-0 (Version None)
Quarter: 2006Q4

REPORT INFORMATION
  Report Type: 
  Country: None (occurrence: None)
  Receive Date: 20061110
  Receipt Date: 20061023
  Transmission Date: 20070319
  Serious: Yes (Other)
  Sender: FDA-Public Use
  Company Number: JP-SANOFI-SYNTHELABO-A01200609151

PATIENT
  Age: 960 Month
  Sex: Female
  Weight: 65 kg

DRUGS (10)
  1. AMLODIPINE BESYLATE [Concomitant]
     Dosage: 2.5 MG
     Route: 048
     Dates: start: 20001025
  2. DOGMATYL [Concomitant]
     Dosage: 150 MG
     Route: 048
     Dates: start: 19960705
  3. ROCORNAL [Concomitant]
     Dosage: 300 MG
     Route: 048
     Dates: start: 19960705
  4. RIZE [Concomitant]
     Dosage: 10 MG
     Route: 048
     Dates: start: 19980217
  5. PANALDINE [Concomitant]
     Dosage: 200 MG
     Route: 048
     Dates: start: 19960705
  6. MEIACT [Suspect]
     Indication: UPPER RESPIRATORY TRACT INFECTION
     Dosage: 300 MG
     Route: 048
     Dates: start: 20060922, end: 20060922
  7. LIPITOR [Suspect]
     Indication: HYPERLIPIDAEMIA
     Dosage: 10 MG
     Route: 048
     Dates: start: 20000615, end: 20060925
  8. MYSLEE [Suspect]
     Indication: INSOMNIA
     Dosage: 10 MG
     Route: 048
     Dates: start: 20060307
  9. EXCELASE [Concomitant]
     Dosage: 3 DF
     Route: 048
     Dates: start: 19960705
  10. PL [Suspect]
     Indication: UPPER RESPIRATORY TRACT INFECTION
     Dosage: 3 G
     Route: 048
     Dates: start: 20060922, end: 20060922

REACTIONS (8)
  - ASTHENIA [None]
  - BLOOD CREATINE PHOSPHOKINASE INCREASED [None]
  - CHEST PAIN [None]
  - DIZZINESS [None]
  - MYALGIA [None]
  - MYOGLOBIN BLOOD INCREASED [None]
  - PAIN IN EXTREMITY [None]
  - RHABDOMYOLYSIS [None]
